FAERS Safety Report 7993056-0 (Version None)
Quarter: 2011Q4

REPORT INFORMATION
  Report Type: 
  Country: None (occurrence: None)
  Receive Date: 20111219
  Receipt Date: 20110428
  Transmission Date: 20120403
  Serious: No
  Sender: FDA-Public Use
  Company Number: US-ASTRAZENECA-2010SE59290

PATIENT
  Age: 61 Year
  Sex: Female

DRUGS (5)
  1. PRAVASTATIN [Suspect]
  2. CRESTOR [Suspect]
     Route: 048
  3. MELATONIN [Concomitant]
  4. AMBIEN [Concomitant]
  5. BENADRYL [Concomitant]

REACTIONS (4)
  - TOOTH FRACTURE [None]
  - INAPPROPRIATE SCHEDULE OF DRUG ADMINISTRATION [None]
  - LIGAMENT RUPTURE [None]
  - INSOMNIA [None]
